FAERS Safety Report 20836573 (Version 1)
Quarter: 2022Q2

REPORT INFORMATION
  Report Type: Spontaneous
  Country: JP (occurrence: JP)
  Receive Date: 20220517
  Receipt Date: 20220517
  Transmission Date: 20220720
  Serious: Yes (Other)
  Sender: FDA-Public Use
  Company Number: JP-DSJP-DSJ-2022-114973

PATIENT

DRUGS (6)
  1. DENOSUMAB [Suspect]
     Active Substance: DENOSUMAB
     Indication: Rheumatoid arthritis
     Dosage: 60 MILLIGRAM, Q6MO
     Route: 058
     Dates: start: 20190913, end: 20211029
  2. AMLODIPINE BESYLATE\TELMISARTAN [Concomitant]
     Active Substance: AMLODIPINE BESYLATE\TELMISARTAN
     Dosage: UNK UNK, QD
     Route: 048
  3. NEXIUM [Concomitant]
     Active Substance: ESOMEPRAZOLE MAGNESIUM
     Dosage: 20 MILLIGRAM, QD
     Route: 048
  4. ASPIRIN [Concomitant]
     Active Substance: ASPIRIN
     Dosage: 100 MILLIGRAM, QD
     Route: 048
  5. SULFASALAZINE [Concomitant]
     Active Substance: SULFASALAZINE
     Dosage: 500 MILLIGRAM, BID
     Route: 048
  6. ORENCIA [Concomitant]
     Active Substance: ABATACEPT
     Dosage: 125 MILLIGRAM, QWK
     Route: 058

REACTIONS (2)
  - Spinal compression fracture [Recovering/Resolving]
  - Fall [Unknown]

NARRATIVE: CASE EVENT DATE: 20220422
